FAERS Safety Report 7358501-2 (Version None)
Quarter: 2011Q1

REPORT INFORMATION
  Report Type: 
  Country: None (occurrence: None)
  Receive Date: 20110317
  Receipt Date: 20110314
  Transmission Date: 20110831
  Serious: Yes (Hospitalization, Disabling, Other)
  Sender: FDA-Public Use
  Company Number: FR-ABBOTT-10P-056-0675668-00

PATIENT
  Sex: Male

DRUGS (4)
  1. HUMIRA [Suspect]
     Indication: PSORIASIS
     Route: 058
     Dates: start: 20081001, end: 20090610
  2. STAGID [Concomitant]
     Indication: PRODUCT USED FOR UNKNOWN INDICATION
  3. ETANERCEPT [Suspect]
     Indication: PSORIASIS
     Route: 058
     Dates: start: 20080201, end: 20081001
  4. KARDEGIC [Concomitant]
     Indication: PRODUCT USED FOR UNKNOWN INDICATION

REACTIONS (10)
  - BRONCHITIS [None]
  - NATURAL KILLER-CELL LYMPHOBLASTIC LYMPHOMA [None]
  - SKIN PLAQUE [None]
  - LEUKAEMIA PLASMACYTIC [None]
  - BLINDNESS TRANSIENT [None]
  - CAROTID ARTERY STENOSIS [None]
  - ISCHAEMIC STROKE [None]
  - ECCHYMOSIS [None]
  - SKIN LESION [None]
  - ANAEMIA [None]
